FAERS Safety Report 6761061-8 (Version None)
Quarter: 2010Q2

REPORT INFORMATION
  Report Type: 
  Country: None (occurrence: None)
  Receive Date: 20100608
  Receipt Date: 20100601
  Transmission Date: 20101027
  Serious: Yes (Other)
  Sender: FDA-Public Use
  Company Number: B0643848A

PATIENT
  Sex: Female

DRUGS (7)
  1. DEROXAT [Suspect]
     Indication: DEPRESSION
     Route: 048
     Dates: start: 20020101, end: 20070101
  2. ATHYMIL [Suspect]
     Indication: DEPRESSION
     Route: 048
     Dates: start: 20020101, end: 20070101
  3. MOCLAMINE [Concomitant]
     Indication: DEPRESSION
     Dates: start: 20070101
  4. TERCIAN [Concomitant]
     Indication: DEPRESSION
     Dates: start: 20070101
  5. LORAZEPAM [Concomitant]
     Indication: DEPRESSION
     Dates: start: 20070101
  6. STABLON [Concomitant]
     Dosage: 3TAB PER DAY
     Route: 065
  7. ALCOHOL [Concomitant]
     Route: 065

REACTIONS (4)
  - EYE IRRITATION [None]
  - SJOGREN'S SYNDROME [None]
  - VISION BLURRED [None]
  - VISUAL ACUITY REDUCED [None]
